FAERS Safety Report 26095594 (Version 1)
Quarter: 2025Q4

REPORT INFORMATION
  Report Type: Spontaneous
  Country: US (occurrence: US)
  Receive Date: 20251127
  Receipt Date: 20251127
  Transmission Date: 20260118
  Serious: Yes (Life-Threatening, Hospitalization)
  Sender: EMCURE PHARMACEUTICALS LTD
  Company Number: US-AVET LIFESCIENCES LTD-2025-AVET-000340

PATIENT
  Age: 64 Year
  Sex: Female

DRUGS (8)
  1. PRAMIPEXOLE DIHYDROCHLORIDE [Suspect]
     Active Substance: PRAMIPEXOLE DIHYDROCHLORIDE
     Indication: Restless legs syndrome
     Dosage: 0.5 MG THREE TIMES DAILY
     Route: 065
     Dates: start: 201906
  2. PRAMIPEXOLE DIHYDROCHLORIDE [Suspect]
     Active Substance: PRAMIPEXOLE DIHYDROCHLORIDE
     Dosage: PROGRESSIVELY ESCALATED, REACHING 1.5 MG THREE TIMES DAILY BY DECEMBER 2019
     Route: 065
     Dates: start: 201912
  3. PRAMIPEXOLE DIHYDROCHLORIDE [Suspect]
     Active Substance: PRAMIPEXOLE DIHYDROCHLORIDE
     Dosage: 3 MG THREE TIMES DAILY
     Route: 065
     Dates: start: 202409
  4. BUPROPION [Concomitant]
     Active Substance: BUPROPION
     Indication: Mental disorder
     Dosage: 450 MG DAILY
     Route: 065
  5. BUSPIRONE [Concomitant]
     Active Substance: BUSPIRONE HYDROCHLORIDE
     Indication: Mental disorder
     Dosage: 15 MG THREE TIMES DAILY
     Route: 065
  6. GABAPENTIN [Concomitant]
     Active Substance: GABAPENTIN
     Indication: Restless legs syndrome
     Dosage: 600 MG THREE TIMES DAILY
     Route: 065
  7. TOPIRAMATE [Concomitant]
     Active Substance: TOPIRAMATE
     Indication: Mental disorder
     Dosage: 100 MG TWICE DAILY
     Route: 065
  8. VENLAFAXINE [Concomitant]
     Active Substance: VENLAFAXINE HYDROCHLORIDE
     Indication: Mental disorder
     Dosage: 300 MG DAILY
     Route: 065

REACTIONS (9)
  - Facial pain [Recovered/Resolved]
  - Neurodermatitis [Recovered/Resolved]
  - Skin abrasion [Recovered/Resolved]
  - Suicidal ideation [Recovered/Resolved]
  - Depressed mood [Recovered/Resolved]
  - Depression [Recovered/Resolved]
  - Hallucination [Recovered/Resolved]
  - Impulsive behaviour [Recovered/Resolved]
  - Psychotic disorder [Recovered/Resolved]
